FAERS Safety Report 20230612 (Version 20)
Quarter: 2022Q4

REPORT INFORMATION
  Report Type: Report from Study
  Country: CN (occurrence: None)
  Receive Date: 20211227
  Receipt Date: 20221102
  Transmission Date: 20230112
  Serious: Yes (Hospitalization)
  Sender: FDA-Public Use
  Company Number: CN-ROCHE-2973926

PATIENT
  Age: 57 Year
  Sex: Male
  Weight: 67 kg

DRUGS (90)
  1. TIRAGOLUMAB [Suspect]
     Active Substance: TIRAGOLUMAB
     Indication: Oesophageal squamous cell carcinoma metastatic
     Dosage: DATE OF MOST RECENT DOSE OF STUDY DRUG PRIOR TO AE + SAE: 05/NOV/2021
     Route: 042
     Dates: start: 20210903
  2. ATEZOLIZUMAB [Suspect]
     Active Substance: ATEZOLIZUMAB
     Indication: Oesophageal squamous cell carcinoma metastatic
     Dosage: DATE OF MOST RECENT DOSE OF STUDY DRUG PRIOR TO AE + SAE: 05/NOV/2021
     Route: 042
     Dates: start: 20210903
  3. PACLITAXEL [Suspect]
     Active Substance: PACLITAXEL
     Indication: Oesophageal squamous cell carcinoma metastatic
     Dosage: DATE OF MOST RECENT DOSE OF STUDY DRUG PRIOR TO AE + SAE: 03/SEP/2021
     Route: 042
     Dates: start: 20210903
  4. CISPLATIN [Suspect]
     Active Substance: CISPLATIN
     Indication: Oesophageal squamous cell carcinoma metastatic
     Dosage: DATE OF MOST RECENT DOSE OF STUDY DRUG PRIOR TO AE + SAE: 05/NOV/2021 (81 MG)?DATE OF MOST RECENT DO
     Route: 042
     Dates: start: 20210904
  5. MAGNESIUM ISOGLYCYRRHIZINATE [Concomitant]
     Active Substance: MAGNESIUM ISOGLYCYRRHIZINATE
     Dosage: LIVER PROTECTION
     Route: 042
     Dates: start: 20211225, end: 20211231
  6. MAGNESIUM ISOGLYCYRRHIZINATE [Concomitant]
     Active Substance: MAGNESIUM ISOGLYCYRRHIZINATE
     Route: 042
     Dates: start: 20211204, end: 20211206
  7. LEVAMLODIPINE MALEATE [Concomitant]
     Active Substance: LEVAMLODIPINE MALEATE
     Indication: Hypertension
     Dates: start: 2007
  8. ESOMEPRAZOLE MAGNESIUM [Concomitant]
     Active Substance: ESOMEPRAZOLE MAGNESIUM
     Dates: start: 20210825
  9. ESOMEPRAZOLE MAGNESIUM [Concomitant]
     Active Substance: ESOMEPRAZOLE MAGNESIUM
     Route: 042
     Dates: start: 20211203, end: 20211203
  10. ESOMEPRAZOLE MAGNESIUM [Concomitant]
     Active Substance: ESOMEPRAZOLE MAGNESIUM
     Dates: start: 20211111, end: 20211124
  11. CEFOPERAZONE SODIUM\SULBACTAM SODIUM [Concomitant]
     Active Substance: CEFOPERAZONE SODIUM\SULBACTAM SODIUM
     Route: 042
     Dates: start: 20211114, end: 20211114
  12. CEFOPERAZONE SODIUM\SULBACTAM SODIUM [Concomitant]
     Active Substance: CEFOPERAZONE SODIUM\SULBACTAM SODIUM
     Route: 042
     Dates: start: 20211111, end: 20211114
  13. CEFOPERAZONE SODIUM\SULBACTAM SODIUM [Concomitant]
     Active Substance: CEFOPERAZONE SODIUM\SULBACTAM SODIUM
     Route: 042
     Dates: start: 20211111, end: 20211112
  14. CEFOPERAZONE SODIUM\SULBACTAM SODIUM [Concomitant]
     Active Substance: CEFOPERAZONE SODIUM\SULBACTAM SODIUM
     Route: 042
     Dates: start: 20211113, end: 20211113
  15. SODIUM CHLORIDE [Concomitant]
     Active Substance: SODIUM CHLORIDE
     Route: 042
     Dates: start: 20211111, end: 20211112
  16. SODIUM CHLORIDE [Concomitant]
     Active Substance: SODIUM CHLORIDE
     Route: 042
     Dates: start: 20211113, end: 20211114
  17. SODIUM CHLORIDE [Concomitant]
     Active Substance: SODIUM CHLORIDE
     Dates: start: 20211105, end: 20211107
  18. SODIUM CHLORIDE [Concomitant]
     Active Substance: SODIUM CHLORIDE
     Route: 042
     Dates: start: 20211226, end: 20211231
  19. SODIUM CHLORIDE [Concomitant]
     Active Substance: SODIUM CHLORIDE
     Dates: start: 20211214, end: 20211216
  20. POTASSIUM CHLORIDE [Concomitant]
     Active Substance: POTASSIUM CHLORIDE
     Route: 042
     Dates: start: 20211111, end: 20211114
  21. POTASSIUM CHLORIDE [Concomitant]
     Active Substance: POTASSIUM CHLORIDE
     Dates: start: 20211105, end: 20211107
  22. POTASSIUM CHLORIDE [Concomitant]
     Active Substance: POTASSIUM CHLORIDE
     Dates: start: 20211214, end: 20211216
  23. POTASSIUM CHLORIDE [Concomitant]
     Active Substance: POTASSIUM CHLORIDE
     Route: 042
     Dates: start: 20211203, end: 20211203
  24. VITAMIN B1 [Concomitant]
     Active Substance: THIAMINE HYDROCHLORIDE
     Route: 042
     Dates: start: 20211112, end: 20211112
  25. ESOMEPRAZOLE SODIUM [Concomitant]
     Active Substance: ESOMEPRAZOLE SODIUM
     Dates: start: 20211105, end: 20211107
  26. ESOMEPRAZOLE SODIUM [Concomitant]
     Active Substance: ESOMEPRAZOLE SODIUM
     Route: 042
     Dates: start: 20211111, end: 20211114
  27. ESOMEPRAZOLE SODIUM [Concomitant]
     Active Substance: ESOMEPRAZOLE SODIUM
     Dates: start: 20211214, end: 20211217
  28. ESOMEPRAZOLE SODIUM [Concomitant]
     Active Substance: ESOMEPRAZOLE SODIUM
     Dates: start: 20211217, end: 20211217
  29. ESOMEPRAZOLE SODIUM [Concomitant]
     Active Substance: ESOMEPRAZOLE SODIUM
     Dates: start: 20211219, end: 20211219
  30. ESOMEPRAZOLE SODIUM [Concomitant]
     Active Substance: ESOMEPRAZOLE SODIUM
     Route: 042
     Dates: start: 20211203, end: 20211203
  31. ESOMEPRAZOLE SODIUM [Concomitant]
     Active Substance: ESOMEPRAZOLE SODIUM
     Dates: start: 20211218, end: 20211218
  32. DEXTROSE AND SODIUM CHLORIDE [Concomitant]
     Active Substance: DEXTROSE MONOHYDRATE\SODIUM CHLORIDE
     Dates: start: 20211105, end: 20211105
  33. MANNITOL [Concomitant]
     Active Substance: MANNITOL
     Indication: Polyuria
     Dates: start: 20211105, end: 20211105
  34. MANNITOL [Concomitant]
     Active Substance: MANNITOL
     Dates: start: 20211215, end: 20211215
  35. APREPITANT [Concomitant]
     Active Substance: APREPITANT
     Indication: Prophylaxis of nausea and vomiting
     Dates: start: 20211105, end: 20211107
  36. APREPITANT [Concomitant]
     Active Substance: APREPITANT
     Dates: start: 20211215, end: 20211217
  37. METOCLOPRAMIDE HYDROCHLORIDE [Concomitant]
     Active Substance: METOCLOPRAMIDE HYDROCHLORIDE
     Dates: start: 20211106, end: 20211106
  38. OMEPRAZOLE SODIUM [Concomitant]
     Active Substance: OMEPRAZOLE SODIUM
     Route: 042
     Dates: start: 20211204, end: 20211211
  39. OMEPRAZOLE SODIUM [Concomitant]
     Active Substance: OMEPRAZOLE SODIUM
     Route: 042
     Dates: start: 20211203, end: 20211203
  40. CEFOTAXIME SODIUM [Concomitant]
     Active Substance: CEFOTAXIME SODIUM
     Route: 042
     Dates: start: 20211203, end: 20211206
  41. CEFOTAXIME SODIUM [Concomitant]
     Active Substance: CEFOTAXIME SODIUM
     Route: 042
     Dates: start: 20211211, end: 20211211
  42. CEFOTAXIME SODIUM [Concomitant]
     Active Substance: CEFOTAXIME SODIUM
     Dosage: ANTI-INFLAMMATORY
     Route: 042
     Dates: start: 20211225, end: 20211231
  43. GLUTATHIONE [Concomitant]
     Active Substance: GLUTATHIONE
     Dosage: LIVER PROTECTION
     Route: 042
     Dates: start: 20211204, end: 20211206
  44. GLUTATHIONE [Concomitant]
     Active Substance: GLUTATHIONE
     Dosage: LIVER PROTECTION
     Route: 042
     Dates: start: 20211225, end: 20211231
  45. DEXAMETHASONE SODIUM PHOSPHATE [Concomitant]
     Active Substance: DEXAMETHASONE SODIUM PHOSPHATE
     Dosage: ALLERGY PREVENTION
     Route: 042
     Dates: start: 20211204, end: 20211204
  46. DEXAMETHASONE SODIUM PHOSPHATE [Concomitant]
     Active Substance: DEXAMETHASONE SODIUM PHOSPHATE
     Dosage: ALLERGY PREVENTION
     Route: 042
     Dates: start: 20211225, end: 20211226
  47. DIPHENHYDRAMINE HYDROCHLORIDE [Concomitant]
     Active Substance: DIPHENHYDRAMINE HYDROCHLORIDE
     Route: 030
     Dates: start: 20211204, end: 20211204
  48. IRON SUCROSE [Concomitant]
     Active Substance: IRON SUCROSE
     Route: 042
     Dates: start: 20211209, end: 20211211
  49. DEXTROSE [Concomitant]
     Active Substance: DEXTROSE
     Route: 042
     Dates: start: 20211204, end: 20211206
  50. METRONIDAZOLE [Concomitant]
     Active Substance: METRONIDAZOLE
     Route: 048
     Dates: start: 20211115, end: 20211118
  51. CEFACLOR [Concomitant]
     Active Substance: CEFACLOR
     Route: 048
     Dates: start: 20211115, end: 20211118
  52. TORSEMIDE [Concomitant]
     Active Substance: TORSEMIDE
     Indication: Polyuria
     Route: 042
     Dates: start: 20211214, end: 20211216
  53. TORSEMIDE [Concomitant]
     Active Substance: TORSEMIDE
     Route: 042
     Dates: start: 20211225, end: 20211226
  54. PALONOSETRON HYDROCHLORIDE [Concomitant]
     Active Substance: PALONOSETRON HYDROCHLORIDE
     Indication: Prophylaxis of nausea and vomiting
     Dates: start: 20211215, end: 20211215
  55. PALONOSETRON HYDROCHLORIDE [Concomitant]
     Active Substance: PALONOSETRON HYDROCHLORIDE
     Dates: start: 20211105, end: 20211105
  56. COMPOUND ELECTROLYTES AND GLUCOSE INJECTION MG3 [Concomitant]
     Dates: start: 20211214, end: 20211216
  57. COMPOUND ELECTROLYTES AND GLUCOSE INJECTION MG3 [Concomitant]
     Dates: start: 20211215, end: 20211216
  58. HYDROMORPHONE HYDROCHLORIDE [Concomitant]
     Active Substance: HYDROMORPHONE HYDROCHLORIDE
     Indication: Pain
     Route: 042
     Dates: start: 20211230, end: 20211230
  59. IRON SUCROSE [Concomitant]
     Active Substance: IRON SUCROSE
     Dosage: SUPPLEMENTAL HEMOGLOBIN
     Route: 042
     Dates: start: 20211225, end: 20211231
  60. IRON SUCROSE [Concomitant]
     Active Substance: IRON SUCROSE
     Dosage: SUPPLEMENTAL HEMOGLOBIN
     Route: 042
     Dates: start: 20211209, end: 20211211
  61. TORSEMIDE [Concomitant]
     Active Substance: TORSEMIDE
     Indication: Polyuria
     Route: 042
     Dates: start: 20211225, end: 20211226
  62. FAT EMULSION, AMINO ACIDS (17) AND GLUCOSE (11%) [Concomitant]
     Dosage: NUTRITIONAL SUPPLEMENTS
     Route: 042
     Dates: start: 20211226, end: 20211231
  63. METOCLOPRAMIDE HYDROCHLORIDE [Concomitant]
     Active Substance: METOCLOPRAMIDE HYDROCHLORIDE
     Indication: Nausea
     Dates: start: 20211106, end: 20211106
  64. MONTMORILLONITE [Concomitant]
     Active Substance: MONTMORILLONITE
     Indication: Diarrhoea
     Dates: start: 20211114, end: 20211115
  65. BACILLUS LICHENIFORMIS CAPSULE,LIVE [Concomitant]
     Dates: start: 20211114, end: 20211115
  66. OLANZAPINE [Concomitant]
     Active Substance: OLANZAPINE
     Dates: start: 20211108, end: 20211110
  67. CEFACLOR [Concomitant]
     Active Substance: CEFACLOR
     Dates: start: 20211115, end: 20211118
  68. METRONIDAZOLE [Concomitant]
     Active Substance: METRONIDAZOLE
     Dates: start: 20211115, end: 20211118
  69. LIDOCAINE HYDROCHLORIDE [Concomitant]
     Active Substance: LIDOCAINE HYDROCHLORIDE
     Route: 058
     Dates: start: 20211203, end: 20211203
  70. OCTREOTIDE ACETATE [Concomitant]
     Active Substance: OCTREOTIDE ACETATE
     Indication: Haemostasis
     Route: 042
     Dates: start: 20211203, end: 20211203
  71. POSTERIOR PITUITARY [Concomitant]
     Indication: Haemostasis
     Dosage: MEDICATION DOSE 60 U
     Route: 042
     Dates: start: 20211203, end: 20211203
  72. OMEPRAZOLE SODIUM [Concomitant]
     Active Substance: OMEPRAZOLE SODIUM
     Route: 042
     Dates: start: 20211203, end: 20211203
  73. OMEPRAZOLE SODIUM [Concomitant]
     Active Substance: OMEPRAZOLE SODIUM
     Route: 042
     Dates: start: 20211204, end: 20211211
  74. OMEPRAZOLE SODIUM [Concomitant]
     Active Substance: OMEPRAZOLE SODIUM
     Route: 042
     Dates: start: 20211225, end: 20211231
  75. PACLITAXEL [Concomitant]
     Active Substance: PACLITAXEL
     Dates: start: 20220107, end: 20220428
  76. CAMRELIZUMAB [Concomitant]
     Active Substance: CAMRELIZUMAB
     Dates: start: 20220107, end: 20220428
  77. CARBOPLATIN [Concomitant]
     Active Substance: CARBOPLATIN
     Dates: start: 20220107, end: 20220428
  78. SOMATOSTATIN [Concomitant]
     Active Substance: SOMATOSTATIN
     Indication: Haemostasis
     Route: 042
     Dates: start: 20211225, end: 20211229
  79. POSTERIOR PITUITARY INJECTION [Concomitant]
     Indication: Haemostasis
     Dosage: DOSE: 60 U
     Route: 042
     Dates: start: 20211203, end: 20211203
  80. SNAKE VENOM [Concomitant]
     Indication: Haemostasis
     Route: 030
     Dates: start: 20211217, end: 20211219
  81. SNAKE VENOM [Concomitant]
     Route: 030
     Dates: start: 20211203, end: 20211204
  82. WHEY [Concomitant]
     Active Substance: WHEY
     Dates: start: 20211119
  83. VITAMIN C [Concomitant]
     Active Substance: ASCORBIC ACID
     Dates: start: 20211119
  84. ZINC GLUCONATE [Concomitant]
     Active Substance: ZINC GLUCONATE
     Dates: start: 20211119
  85. VITAMIN B1 [Concomitant]
     Active Substance: THIAMINE HYDROCHLORIDE
     Dates: start: 20211119
  86. VITAMIN B2 [Concomitant]
     Active Substance: RIBOFLAVIN
     Dates: start: 20211119
  87. VITAMIN B6 [Concomitant]
     Active Substance: PYRIDOXINE HYDROCHLORIDE
     Dates: start: 20211119
  88. PANCREATIN [Concomitant]
     Active Substance: PANCRELIPASE
     Dates: start: 20211119
  89. FERROUS SUCCINATE [Concomitant]
     Active Substance: FERROUS SUCCINATE
     Indication: Haemoglobin decreased
     Dates: start: 20211224
  90. HEMOCOAGULASE ATROX [Concomitant]
     Indication: Haemoptysis
     Dates: start: 20211219, end: 20211219

REACTIONS (2)
  - Coagulation test abnormal [Recovered/Resolved]
  - Upper gastrointestinal haemorrhage [Recovered/Resolved]

NARRATIVE: CASE EVENT DATE: 20211201
